FAERS Safety Report 4455144-5 (Version None)
Quarter: 2004Q3

REPORT INFORMATION
  Report Type: 
  Country: None (occurrence: None)
  Receive Date: 20040907
  Receipt Date: 20031211
  Transmission Date: 20050211
  Serious: Yes (Hospitalization)
  Sender: FDA-Public Use
  Company Number: FR-GLAXOSMITHKLINE-B0317401A

PATIENT
  Age: 62 Year
  Sex: Male
  Weight: 67 kg

DRUGS (11)
  1. AVANDIA [Suspect]
     Route: 048
     Dates: start: 20030101, end: 20031101
  2. VALPROIC ACID [Suspect]
     Indication: CONVULSION
     Dosage: 1000MG PER DAY
     Route: 048
     Dates: start: 19930205
  3. HYDROCORTISONE [Concomitant]
     Dosage: 25MG PER DAY
     Route: 048
     Dates: start: 20000515
  4. HYPERIUM [Concomitant]
     Indication: HYPERTENSION
     Dosage: 1TAB PER DAY
     Route: 048
  5. COAPROVEL [Concomitant]
     Indication: HYPERTENSION
     Dosage: 1TAB PER DAY
     Route: 048
  6. ISOPTINE LP 240 MG [Concomitant]
     Indication: HYPERTENSION
     Dosage: 1TAB PER DAY
     Route: 048
  7. EUROBIOL [Concomitant]
     Dosage: 2TAB THREE TIMES PER DAY
     Route: 048
  8. DEDROGYL [Concomitant]
     Dosage: 5DROP PER DAY
     Route: 048
  9. ASPIRIN [Concomitant]
     Dosage: 160MG PER DAY
     Route: 048
  10. ELISOR [Concomitant]
     Dosage: 20MG PER DAY
     Route: 048
  11. DAONIL [Concomitant]
     Dosage: 15MG PER DAY
     Route: 048

REACTIONS (4)
  - ASTHENIA [None]
  - DIABETES MELLITUS INADEQUATE CONTROL [None]
  - HEADACHE [None]
  - HYPONATRAEMIA [None]
